FAERS Safety Report 6184208-3 (Version None)
Quarter: 2009Q2

REPORT INFORMATION
  Report Type: 
  Country: None (occurrence: None)
  Receive Date: 20090508
  Receipt Date: 20090501
  Transmission Date: 20091009
  Serious: Yes (Other)
  Sender: FDA-Public Use
  Company Number: US-ELI_LILLY_AND_COMPANY-US200905000283

PATIENT
  Age: 86 Year
  Sex: Female

DRUGS (7)
  1. EVISTA [Suspect]
     Dosage: UNK, UNKNOWN
     Route: 065
  2. NORVASC [Concomitant]
     Dosage: UNK, UNKNOWN
     Route: 065
  3. TENORMIN [Concomitant]
     Dosage: UNK, UNKNOWN
     Route: 065
  4. MICRO-K [Concomitant]
     Dosage: UNK, UNKNOWN
     Route: 065
  5. PRESERVISION LUTEIN EYE VITA.+MIN.SUP.SOFTG. [Concomitant]
     Dosage: UNK, UNKNOWN
     Route: 065
  6. PRILOSEC [Concomitant]
     Dosage: UNK, UNKNOWN
     Route: 065
  7. BACLOFEN [Concomitant]
     Dosage: UNK, UNKNOWN
     Route: 065

REACTIONS (2)
  - BLINDNESS UNILATERAL [None]
  - MACULAR DEGENERATION [None]
